FAERS Safety Report 18944468 (Version 1)
Quarter: 2021Q1

REPORT INFORMATION
  Report Type: Spontaneous
  Country: US (occurrence: US)
  Receive Date: 20210226
  Receipt Date: 20210226
  Transmission Date: 20210420
  Serious: Yes (Life-Threatening, Hospitalization, Other)
  Sender: FDA-Public Use
  Company Number: US-AUROBINDO-AUR-APL-2021-007556

PATIENT
  Age: 21 Year
  Sex: Female

DRUGS (2)
  1. CLEMIZOLE PENICILLIN [Suspect]
     Active Substance: CLEMIZOLE PENICILLIN
     Indication: PRODUCT USED FOR UNKNOWN INDICATION
     Dosage: UNK
     Route: 065
  2. LAMOTRIGINE. [Suspect]
     Active Substance: LAMOTRIGINE
     Indication: PRODUCT USED FOR UNKNOWN INDICATION
     Dosage: UNK
     Route: 065

REACTIONS (8)
  - Tachycardia [Recovering/Resolving]
  - Hypotension [Recovering/Resolving]
  - Lymphadenopathy [Recovering/Resolving]
  - Tachypnoea [Recovering/Resolving]
  - Drug reaction with eosinophilia and systemic symptoms [Recovering/Resolving]
  - Acute hepatic failure [Recovering/Resolving]
  - Human herpesvirus 6 infection [Recovering/Resolving]
  - Hepatosplenomegaly [Recovering/Resolving]
